FAERS Safety Report 13060715 (Version 5)
Quarter: 2017Q1

REPORT INFORMATION
  Report Type: Spontaneous
  Country: JP (occurrence: JP)
  Receive Date: 20161225
  Receipt Date: 20170303
  Transmission Date: 20170428
  Serious: Yes (Death, Hospitalization, Other)
  Sender: FDA-Public Use
  Company Number: JP-ASTRAZENECA-2016SF29827

PATIENT
  Age: 48 Year
  Sex: Female
  Weight: 46 kg

DRUGS (3)
  1. OXYCONTIN [Concomitant]
     Active Substance: OXYCODONE HYDROCHLORIDE
     Indication: BREAST CANCER RECURRENT
     Route: 048
     Dates: start: 20160622
  2. FASLODEX [Suspect]
     Active Substance: FULVESTRANT
     Dosage: 500.0MG UNKNOWN
     Route: 030
     Dates: start: 20161117, end: 20161202
  3. OXINORM [Concomitant]
     Active Substance: OXYCODONE HYDROCHLORIDE
     Dosage: 5 MG, RESCUE DOSE
     Route: 048
     Dates: start: 20160622

REACTIONS (5)
  - Subclavian vein thrombosis [Not Recovered/Not Resolved]
  - Hepatic failure [Fatal]
  - Dehydration [Recovering/Resolving]
  - Jugular vein thrombosis [Unknown]
  - Pulmonary artery thrombosis [Unknown]

NARRATIVE: CASE EVENT DATE: 2016
